FAERS Safety Report 10990697 (Version 1)
Quarter: 2015Q2

REPORT INFORMATION
  Report Type: Report from Study
  Country: AR (occurrence: AR)
  Receive Date: 20150406
  Receipt Date: 20150406
  Transmission Date: 20150821
  Serious: Yes (Other)
  Sender: FDA-Public Use
  Company Number: AR-EMD SERONO-7322853

PATIENT
  Age: 44 Year
  Sex: Female

DRUGS (4)
  1. REBIF [Suspect]
     Active Substance: INTERFERON BETA-1A
     Dosage: THERAPY RESUMED
     Dates: start: 201503
  2. REBIF [Suspect]
     Active Substance: INTERFERON BETA-1A
     Indication: MULTIPLE SCLEROSIS
     Dates: start: 20100303, end: 20120514
  3. REBIF [Suspect]
     Active Substance: INTERFERON BETA-1A
     Dates: start: 20140819, end: 201410
  4. REBIF [Suspect]
     Active Substance: INTERFERON BETA-1A
     Dates: start: 20120514

REACTIONS (3)
  - Abdominal mass [Not Recovered/Not Resolved]
  - Lung neoplasm malignant [Recovering/Resolving]
  - Brain neoplasm malignant [Recovering/Resolving]

NARRATIVE: CASE EVENT DATE: 201304
